FAERS Safety Report 5941334-9 (Version None)
Quarter: 2008Q4

REPORT INFORMATION
  Report Type: 
  Country: None (occurrence: None)
  Receive Date: 20081103
  Receipt Date: 20081103
  Transmission Date: 20090506
  Serious: No
  Sender: FDA-Public Use
  Company Number: None

PATIENT
  Age: 56 Year
  Sex: Female
  Weight: 78.4723 kg

DRUGS (1)
  1. BONIVA [Suspect]
     Indication: RESORPTION BONE INCREASED
     Dosage: 1 PILL ONCE A MONTH PO
     Route: 048
     Dates: start: 20080907, end: 20081107

REACTIONS (8)
  - ASTHENIA [None]
  - DYSPEPSIA [None]
  - DYSPNOEA [None]
  - MUSCLE SPASMS [None]
  - MUSCLE TIGHTNESS [None]
  - MYALGIA [None]
  - OVARIAN DISORDER [None]
  - PAIN IN EXTREMITY [None]
